FAERS Safety Report 8822106 (Version 1)
Quarter: 2012Q4

REPORT INFORMATION
  Report Type: 
  Country: US (occurrence: US)
  Receive Date: 20121003
  Receipt Date: 20121003
  Transmission Date: 20130627
  Serious: Yes (Other)
  Sender: FDA-Public Use
  Company Number: US-JNJFOC-20120909834

PATIENT
  Age: 6 None
  Sex: Female

DRUGS (1)
  1. CONCERTA [Suspect]
     Indication: ATTENTION DEFICIT/HYPERACTIVITY DISORDER
     Route: 048
     Dates: start: 201108

REACTIONS (13)
  - Coma [Recovered/Resolved]
  - Overdose [Unknown]
  - Nightmare [Unknown]
  - Feeling drunk [Unknown]
  - Gait disturbance [Unknown]
  - Abnormal loss of weight [Unknown]
  - Drug dose omission [Recovered/Resolved]
  - Blunted affect [Recovered/Resolved]
  - Eating disorder [Unknown]
  - Feeling abnormal [Unknown]
  - Decreased interest [Unknown]
  - Incorrect dose administered [Unknown]
  - Drug administered to patient of inappropriate age [Unknown]
